FAERS Safety Report 12619590 (Version 4)
Quarter: 2016Q4

REPORT INFORMATION
  Report Type: Spontaneous
  Country: JP (occurrence: JP)
  Receive Date: 20160803
  Receipt Date: 20161216
  Transmission Date: 20170207
  Serious: Yes (Death, Hospitalization, Other)
  Sender: FDA-Public Use
  Company Number: JP-PFIZER INC-2016370621

PATIENT
  Age: 15 Year
  Sex: Male
  Weight: 50 kg

DRUGS (45)
  1. ENDOXAN [Suspect]
     Active Substance: CYCLOPHOSPHAMIDE
     Dosage: 120 MG/KG, UNK
     Route: 042
  2. MAXIPIME [Concomitant]
     Active Substance: CEFEPIME HYDROCHLORIDE
     Indication: FEBRILE NEUTROPENIA
     Dosage: UNK
     Route: 042
     Dates: start: 20111009, end: 20111013
  3. DORIPENEM [Concomitant]
     Active Substance: DORIPENEM
     Route: 041
  4. CLINDAMYCIN PHOSPHATE. [Concomitant]
     Active Substance: CLINDAMYCIN PHOSPHATE
  5. FOSCARNET SODIUM. [Concomitant]
     Active Substance: FOSCARNET SODIUM
     Route: 041
  6. ANTI-HUMAN THYMOCYTE IMMUNOGLOBULIN,RABBIT [Concomitant]
     Route: 042
  7. CIPROFLOXACIN. [Concomitant]
     Active Substance: CIPROFLOXACIN
  8. GLIVEC [Suspect]
     Active Substance: IMATINIB MESYLATE
     Indication: ACUTE LYMPHOCYTIC LEUKAEMIA
     Dosage: 600 MG, DAILY
     Route: 048
     Dates: start: 20110930, end: 20111104
  9. SAXIZON [Suspect]
     Active Substance: HYDROCORTISONE SODIUM SUCCINATE
     Indication: ACUTE LYMPHOCYTIC LEUKAEMIA
     Dosage: 25 MG, DAILY
     Route: 024
     Dates: start: 20110930, end: 20110930
  10. AMIKACIN SULFATE. [Concomitant]
     Active Substance: AMIKACIN SULFATE
     Indication: FEBRILE NEUTROPENIA
  11. AMPHOTERICIN B. [Concomitant]
     Active Substance: AMPHOTERICIN B
     Dosage: 5 MG/KG, UNK
  12. AMPHOTERICIN B. [Concomitant]
     Active Substance: AMPHOTERICIN B
     Dosage: 2 MG/KG, UNK
  13. CEFAZOLIN SODIUM. [Concomitant]
     Active Substance: CEFAZOLIN SODIUM
  14. PIPERACILLIN AND TAZOBACTAM [Concomitant]
     Active Substance: PIPERACILLIN SODIUM\TAZOBACTAM SODIUM
     Route: 042
  15. MYCOPHENOLATE MOFETIL. [Concomitant]
     Active Substance: MYCOPHENOLATE MOFETIL
     Route: 048
  16. PREDONINE [Suspect]
     Active Substance: PREDNISOLONE\PREDNISOLONE ACETATE\PREDNISOLONE SODIUM SUCCINATE
     Indication: ACUTE LYMPHOCYTIC LEUKAEMIA
     Dosage: 80 MG, UNK
     Route: 048
     Dates: start: 20110912, end: 20111001
  17. METHOTREXATE. [Suspect]
     Active Substance: METHOTREXATE
     Indication: ACUTE LYMPHOCYTIC LEUKAEMIA
     Dosage: 12 MG, DAILY
     Route: 024
     Dates: start: 20110930, end: 20110930
  18. METHOTREXATE. [Suspect]
     Active Substance: METHOTREXATE
     Dosage: 12 MG, 2X/WEEK
     Route: 024
  19. CYLOCIDE [Suspect]
     Active Substance: CYTARABINE
     Dosage: 30 MG, 2X/WEEK
     Route: 024
  20. AMPHOTERICIN B. [Concomitant]
     Active Substance: AMPHOTERICIN B
     Dosage: 3 MG/KG, UNK
  21. AMPHOTERICIN B. [Concomitant]
     Active Substance: AMPHOTERICIN B
     Dosage: 3 MG/KG, UNK
  22. LENOGRASTIM [Concomitant]
     Active Substance: LENOGRASTIM
  23. METHYLPREDNISOLONE SODIUM SUCCINATE. [Concomitant]
     Active Substance: METHYLPREDNISOLONE SODIUM SUCCINATE
     Route: 042
  24. CICLOSPORIN [Concomitant]
     Active Substance: CYCLOSPORINE
  25. HUMAN NORMAL IMMUNOGLOBULIN [Concomitant]
     Active Substance: HUMAN IMMUNOGLOBULIN G
  26. RECOMODULIN [Concomitant]
     Active Substance: THROMBOMODULIN ALFA
     Dosage: UNK
     Dates: start: 20111001, end: 20111006
  27. LEUNASE [Suspect]
     Active Substance: ASPARAGINASE
     Indication: ACUTE LYMPHOCYTIC LEUKAEMIA
     Dosage: 3000 IU 3 TIMES WEEKLY
     Route: 030
     Dates: start: 20111001, end: 20111109
  28. ONCOVIN [Suspect]
     Active Substance: VINCRISTINE SULFATE
     Indication: ACUTE LYMPHOCYTIC LEUKAEMIA
     Dosage: 2 MG, WEEKLY
     Route: 042
     Dates: start: 20110930, end: 20111104
  29. PREDONINE [Suspect]
     Active Substance: PREDNISOLONE\PREDNISOLONE ACETATE\PREDNISOLONE SODIUM SUCCINATE
     Indication: ACUTE LYMPHOCYTIC LEUKAEMIA
     Dosage: 80 MG, DAILY
     Route: 042
     Dates: start: 20111001, end: 20111023
  30. SAXIZON [Suspect]
     Active Substance: HYDROCORTISONE SODIUM SUCCINATE
     Dosage: 25 MG, 2X/WEEK
     Route: 024
  31. SULFAMETHOXAZOLE AND TRIMETHOPRIM [Concomitant]
     Active Substance: SULFAMETHOXAZOLE\TRIMETHOPRIM
     Indication: INFECTION PROPHYLAXIS
     Route: 048
  32. FLUCONAZOLE. [Concomitant]
     Active Substance: FLUCONAZOLE
     Indication: INFECTION PROPHYLAXIS
  33. VFEND [Concomitant]
     Active Substance: VORICONAZOLE
     Dosage: UNK
     Dates: start: 20111105
  34. TACROLIMUS. [Concomitant]
     Active Substance: TACROLIMUS
     Indication: PROPHYLAXIS AGAINST GRAFT VERSUS HOST DISEASE
  35. METHOTREXATE. [Concomitant]
     Active Substance: METHOTREXATE
     Indication: PROPHYLAXIS AGAINST GRAFT VERSUS HOST DISEASE
     Dosage: UNK
     Route: 024
  36. DASATINIB [Suspect]
     Active Substance: DASATINIB
     Dosage: 100 MG, UNK
     Route: 048
  37. CYLOCIDE [Suspect]
     Active Substance: CYTARABINE
     Indication: ACUTE LYMPHOCYTIC LEUKAEMIA
     Dosage: 30 MG, DAILY
     Route: 024
     Dates: start: 20110930, end: 20110930
  38. MEROPENEM. [Concomitant]
     Active Substance: MEROPENEM
     Route: 041
  39. TEICOPLANIN [Concomitant]
     Active Substance: TEICOPLANIN
     Route: 041
  40. LINEZOLID. [Concomitant]
     Active Substance: LINEZOLID
  41. ADRIACIN [Suspect]
     Active Substance: DOXORUBICIN HYDROCHLORIDE
     Indication: ACUTE LYMPHOCYTIC LEUKAEMIA
     Dosage: 38 MG/M2, WEEKLY
     Route: 042
     Dates: start: 20110930, end: 20111021
  42. ENDOXAN [Suspect]
     Active Substance: CYCLOPHOSPHAMIDE
     Indication: ACUTE LYMPHOCYTIC LEUKAEMIA
     Dosage: 1800 MG, DAILY
     Route: 042
     Dates: start: 20110930, end: 20110930
  43. DASATINIB [Suspect]
     Active Substance: DASATINIB
     Indication: ACUTE LYMPHOCYTIC LEUKAEMIA
     Dosage: 140 MG, UNK
     Route: 048
  44. BIAPENEM [Concomitant]
     Active Substance: BIAPENEM
     Route: 041
  45. PAZUFLOXACIN MESILATE [Concomitant]
     Active Substance: PAZUFLOXACIN MESILATE
     Route: 041

REACTIONS (11)
  - Pseudomonas infection [Unknown]
  - Disseminated intravascular coagulation [Recovered/Resolved]
  - Human herpesvirus 6 infection [Unknown]
  - Encephalitis [Unknown]
  - Graft versus host disease [Fatal]
  - Hypokalaemia [Unknown]
  - Febrile neutropenia [Unknown]
  - Pneumonia [Unknown]
  - Blood creatinine increased [Unknown]
  - Mucormycosis [Recovered/Resolved]
  - Neutrophil count decreased [Unknown]

NARRATIVE: CASE EVENT DATE: 20111001
